FAERS Safety Report 5648820-X (Version None)
Quarter: 2008Q1

REPORT INFORMATION
  Report Type: 
  Country: None (occurrence: None)
  Receive Date: 20080304
  Receipt Date: 20080225
  Transmission Date: 20080703
  Serious: Yes (Life-Threatening, Hospitalization, Other)
  Sender: FDA-Public Use
  Company Number: FR-ELI_LILLY_AND_COMPANY-FR200709004378

PATIENT
  Sex: Female
  Weight: 48 kg

DRUGS (5)
  1. FORTEO [Suspect]
     Indication: OSTEOPOROSIS
     Dosage: 20 UG, DAILY (1/D)
     Route: 058
     Dates: start: 20060601, end: 20061001
  2. FORTEO [Suspect]
     Dosage: 20 UG, DAILY (1/D)
     Route: 058
     Dates: start: 20061120, end: 20071201
  3. FLECAINIDE ACETATE [Concomitant]
     Indication: SUPRAVENTRICULAR TACHYCARDIA
  4. KERLONE [Concomitant]
     Indication: ATRIAL FIBRILLATION
     Dosage: 0.5 D/F, UNK
     Route: 048
     Dates: start: 20020101
  5. ASPEGIC 325 [Concomitant]
     Dosage: 250 MG, UNK
     Route: 048

REACTIONS (7)
  - AORTIC VALVE STENOSIS [None]
  - ARTERIOGRAM CORONARY ABNORMAL [None]
  - BLOOD POTASSIUM DECREASED [None]
  - CARDIOGENIC SHOCK [None]
  - MITRAL VALVE INCOMPETENCE [None]
  - PULMONARY ARTERIAL PRESSURE INCREASED [None]
  - STRESS CARDIOMYOPATHY [None]
